FAERS Safety Report 22059131 (Version 1)
Quarter: 2023Q1

REPORT INFORMATION
  Report Type: Spontaneous
  Country: JP (occurrence: JP)
  Receive Date: 20230303
  Receipt Date: 20230303
  Transmission Date: 20230417
  Serious: Yes (Hospitalization)
  Sender: FDA-Public Use
  Company Number: JP-ELI_LILLY_AND_COMPANY-JP202303001295

PATIENT
  Age: 56 Year
  Sex: Male

DRUGS (40)
  1. TADALAFIL [Suspect]
     Active Substance: TADALAFIL
     Indication: Pulmonary arterial hypertension
     Dosage: 40 MG, DAILY
     Route: 048
  2. UPTRAVI [Suspect]
     Active Substance: SELEXIPAG
     Indication: Pulmonary arterial hypertension
     Dosage: 0.4 MG, DAILY
     Route: 048
     Dates: start: 20181114, end: 20190130
  3. UPTRAVI [Suspect]
     Active Substance: SELEXIPAG
     Dosage: 0.8 MG, DAILY
     Route: 048
     Dates: start: 20190131, end: 20190529
  4. UPTRAVI [Suspect]
     Active Substance: SELEXIPAG
     Dosage: 1.2 MG, DAILY
     Route: 048
     Dates: start: 20190530, end: 20190612
  5. UPTRAVI [Suspect]
     Active Substance: SELEXIPAG
     Dosage: 1.6 MG, DAILY
     Route: 048
     Dates: start: 20190613, end: 20191218
  6. UPTRAVI [Suspect]
     Active Substance: SELEXIPAG
     Dosage: 2 MG, DAILY
     Route: 048
     Dates: start: 20191219, end: 20200916
  7. UPTRAVI [Suspect]
     Active Substance: SELEXIPAG
     Dosage: 2.4 MG, DAILY
     Route: 048
     Dates: start: 20200917, end: 20210308
  8. UPTRAVI [Suspect]
     Active Substance: SELEXIPAG
     Dosage: 2 MG, DAILY
     Route: 048
     Dates: start: 20210309
  9. EPOPROSTENOL [Suspect]
     Active Substance: EPOPROSTENOL
     Indication: Pulmonary arterial hypertension
     Dosage: UNK, UNKNOWN
     Route: 042
  10. OPSUMIT [Concomitant]
     Active Substance: MACITENTAN
     Indication: Pulmonary arterial hypertension
     Dosage: 10 MG, DAILY
     Route: 065
  11. FUROSEMIDE [Concomitant]
     Active Substance: FUROSEMIDE
     Indication: Cardiac failure
     Dosage: 50 MG, DAILY
     Route: 065
     Dates: end: 20191217
  12. FUROSEMIDE [Concomitant]
     Active Substance: FUROSEMIDE
     Dosage: 60 MG, DAILY
     Route: 065
     Dates: start: 20191218, end: 20201021
  13. FUROSEMIDE [Concomitant]
     Active Substance: FUROSEMIDE
     Dosage: UNK UNK, DAILY
     Route: 065
     Dates: start: 20201022
  14. BIFIDOBACTERIUM SPP. [Concomitant]
     Active Substance: BIFIDOBACTERIUM SPP.
     Indication: Prophylaxis
     Dosage: 3 DOSAGE FORM, DAILY
     Route: 065
     Dates: end: 20190920
  15. BIFIDOBACTERIUM SPP. [Concomitant]
     Active Substance: BIFIDOBACTERIUM SPP.
     Dosage: 3 DOSAGE FORM, DAILY
     Route: 065
     Dates: start: 20200415
  16. LOPERAMIDE HYDROCHLORIDE [Concomitant]
     Active Substance: LOPERAMIDE HYDROCHLORIDE
     Indication: Diarrhoea
     Dosage: UNK, UNKNOWN
     Route: 065
     Dates: end: 20190918
  17. LOPERAMIDE HYDROCHLORIDE [Concomitant]
     Active Substance: LOPERAMIDE HYDROCHLORIDE
     Dosage: UNK, UNKNOWN
     Route: 065
     Dates: start: 20210120
  18. NEXIUM [Concomitant]
     Active Substance: ESOMEPRAZOLE MAGNESIUM
     Indication: Prophylaxis
     Dosage: 20 MG, DAILY
     Route: 065
  19. ACETAMINOPHEN [Concomitant]
     Active Substance: ACETAMINOPHEN
     Indication: Prophylaxis
     Dosage: UNK, UNKNOWN
     Route: 065
  20. REBAMIPIDE [Concomitant]
     Active Substance: REBAMIPIDE
     Indication: Prophylaxis
     Dosage: 300 MG, DAILY
     Route: 065
  21. EPINASTINE HYDROCHLORIDE [Concomitant]
     Active Substance: EPINASTINE HYDROCHLORIDE
     Indication: Product used for unknown indication
     Dosage: 20 MG, DAILY
     Route: 065
     Dates: end: 20190918
  22. FLOMOX [CEFCAPENE PIVOXIL HYDROCHLORIDE HYDRA [Concomitant]
     Indication: Prophylaxis
     Dosage: 300 MG, DAILY
     Route: 065
     Dates: start: 20190327, end: 20190918
  23. FLOMOX [CEFCAPENE PIVOXIL HYDROCHLORIDE HYDRA [Concomitant]
     Dosage: 300 MG, DAILY
     Route: 065
     Dates: start: 20191218, end: 20191225
  24. VANCOMYCIN HYDROCHLORIDE [Concomitant]
     Active Substance: VANCOMYCIN HYDROCHLORIDE
     Indication: Catheter site infection
     Dosage: 1.5 G, DAILY
     Route: 065
     Dates: start: 20190918, end: 20190925
  25. MEROPENEM [Concomitant]
     Active Substance: MEROPENEM
     Indication: Catheter site infection
     Dosage: 3 G, DAILY
     Route: 065
     Dates: start: 20190918, end: 20190921
  26. MEROPENEM [Concomitant]
     Active Substance: MEROPENEM
     Dosage: 3 G, DAILY
     Route: 065
     Dates: start: 20191225, end: 20200104
  27. BILASTINE [Concomitant]
     Active Substance: BILASTINE
     Indication: Product used for unknown indication
     Dosage: 15 MG, DAILY
     Route: 065
     Dates: start: 20190919
  28. DIETARY SUPPLEMENT\PROBIOTICS [Concomitant]
     Active Substance: DIETARY SUPPLEMENT\PROBIOTICS
     Indication: Prophylaxis
     Dosage: 3 G, DAILY
     Route: 065
     Dates: start: 20190920, end: 20190925
  29. IRON SUCROSE [Concomitant]
     Active Substance: IRON SUCROSE
     Indication: Anaemia
     Dosage: 80 MG, DAILY
     Route: 065
     Dates: start: 20190919, end: 20191008
  30. POTASSIUM CHLORIDE [Concomitant]
     Active Substance: POTASSIUM CHLORIDE
     Indication: Electrolyte substitution therapy
     Dosage: 80 MG, DAILY
     Route: 065
     Dates: start: 20190922
  31. LASIX [Concomitant]
     Active Substance: FUROSEMIDE
     Indication: Pulmonary arterial hypertension
     Dosage: 20 MG, DAILY
     Route: 065
     Dates: start: 20190922, end: 20190926
  32. SAMSCA [Concomitant]
     Active Substance: TOLVAPTAN
     Indication: Cardiac failure
     Dosage: UNK, UNKNOWN
     Route: 065
     Dates: start: 20190926
  33. SAIREITO [ALISMA PLANTAGO-AQUATICA SUBSP. ORI [Concomitant]
     Indication: Subdural haematoma
     Dosage: 9 G, DAILY
     Route: 065
     Dates: start: 20191118, end: 20200420
  34. CUBICIN [Concomitant]
     Active Substance: DAPTOMYCIN
     Indication: Catheter site infection
     Dosage: 350 MG, DAILY
     Route: 065
     Dates: start: 20191225, end: 20200104
  35. AMPICILLIN SODIUM\SULBACTAM SODIUM [Concomitant]
     Active Substance: AMPICILLIN SODIUM\SULBACTAM SODIUM
     Indication: Prophylaxis
     Dosage: 1125 MG, DAILY
     Route: 065
     Dates: start: 20200115, end: 20200122
  36. AMPICILLIN SODIUM\SULBACTAM SODIUM [Concomitant]
     Active Substance: AMPICILLIN SODIUM\SULBACTAM SODIUM
     Dosage: 1125 MG, DAILY
     Route: 065
     Dates: start: 20200415
  37. CARBAZOCHROME SODIUM SULFONATE [Concomitant]
     Active Substance: CARBAZOCHROME SODIUM SULFONATE
     Indication: Subdural haematoma
     Dosage: 25 MG, DAILY
     Route: 065
     Dates: start: 20200212, end: 20200212
  38. PICILLIBACTA [Concomitant]
     Active Substance: AMPICILLIN SODIUM\SULBACTAM SODIUM
     Indication: Subdural haematoma
     Dosage: 3 G, DAILY
     Route: 065
     Dates: start: 20200212, end: 20200213
  39. MIYA-BM [Concomitant]
     Active Substance: CLOSTRIDIUM BUTYRICUM SPORES STRAIN M-55
     Indication: Prophylaxis
     Dosage: 3 DOSAGE FORM, DAILY
     Route: 065
     Dates: start: 20200715
  40. AZOSEMIDE [Concomitant]
     Active Substance: AZOSEMIDE
     Indication: Cardiac failure
     Dosage: 60 MG, DAILY
     Route: 065
     Dates: start: 20210311

REACTIONS (11)
  - Pulmonary arterial hypertension [Not Recovered/Not Resolved]
  - Vascular device occlusion [Recovered/Resolved]
  - Vascular device occlusion [Recovered/Resolved]
  - Catheter site infection [Recovered/Resolved]
  - Platelet count decreased [Recovering/Resolving]
  - Anaemia [Recovering/Resolving]
  - Subdural haematoma [Recovered/Resolved]
  - Subdural haematoma [Recovered/Resolved]
  - Catheter site infection [Recovered/Resolved]
  - Diarrhoea [Not Recovered/Not Resolved]
  - Malaise [Recovered/Resolved]

NARRATIVE: CASE EVENT DATE: 20190801
